FAERS Safety Report 21964224 (Version 2)
Quarter: 2023Q1

REPORT INFORMATION
  Report Type: Spontaneous
  Country: TW (occurrence: TW)
  Receive Date: 20230207
  Receipt Date: 20230310
  Transmission Date: 20230418
  Serious: Yes (Death, Life-Threatening, Hospitalization)
  Sender: FDA-Public Use
  Company Number: TW-BAYER-2023A014836

PATIENT
  Age: 53 Year
  Sex: Male
  Weight: 46.6 kg

DRUGS (2)
  1. XOFIGO [Suspect]
     Active Substance: RADIUM RA-223 DICHLORIDE
     Indication: Hormone-refractory prostate cancer
     Dosage: TOTAL 5 INJECTIONS FINISHED
     Dates: start: 20220914, end: 20230126
  2. XOFIGO [Suspect]
     Active Substance: RADIUM RA-223 DICHLORIDE
     Indication: Metastases to bone

REACTIONS (1)
  - Critical illness [Fatal]

NARRATIVE: CASE EVENT DATE: 20230126
